FAERS Safety Report 16448864 (Version 1)
Quarter: 2019Q2

REPORT INFORMATION
  Report Type: Spontaneous
  Country: ES (occurrence: ES)
  Receive Date: 20190619
  Receipt Date: 20190619
  Transmission Date: 20190711
  Serious: Yes (Hospitalization)
  Sender: FDA-Public Use
  Company Number: ES-TEVA-2019-ES-1065351

PATIENT
  Age: 76 Year
  Sex: Male
  Weight: 62.5 kg

DRUGS (10)
  1. DOLQUINE 200 MG COMPRIMIDOS RECUBIERTOS, 30 COMPRIMIDOS [Concomitant]
     Route: 048
  2. TRANKIMAZIN 0,50 MG COMPRIMIDOS , 30 COMPRIMIDOS [Concomitant]
     Active Substance: ALPRAZOLAM
     Route: 048
  3. ADIRO 100 MG COMPRIMIDOS GASTRORRESISTENTES EFG [Concomitant]
     Active Substance: ASPIRIN
     Route: 048
  4. VORICONAZOL (2878A) [Suspect]
     Active Substance: VORICONAZOLE
     Indication: ASPERGILLOMA
     Dosage: 200 MG EVERY 12 HOURS
     Route: 048
     Dates: start: 20190504
  5. ESOMEPRAZOL CINFA 20 MG COMPRIMIDOS GASTRORRESISTENTES EFG, 28 COMPRIM [Concomitant]
     Route: 048
     Dates: start: 20190520
  6. KILOR 40 MG GRANULADO, 30 SOBRES [Concomitant]
     Route: 048
  7. LIVAZO 2 MG COMPRIMIDOS RECUBIERTOS CON PELICULA , 28 COMPRIMIDOS [Concomitant]
     Route: 048
  8. DELTIUS 25.000 UI/2,5 ML SOLUCION ORAL , 4 FRASCOS DE 2,5 ML [Concomitant]
     Route: 048
  9. OMEPRAZOL 20 MG 28 C?PSULAS [Concomitant]
     Route: 048
     Dates: end: 20190520
  10. EUTIROX  75 MICROGRAMOS COMPRIMIDOS, 100 COMPRIMIDOS [Concomitant]
     Route: 048

REACTIONS (1)
  - Inappropriate antidiuretic hormone secretion [Recovering/Resolving]

NARRATIVE: CASE EVENT DATE: 201905
